FAERS Safety Report 23700129 (Version 1)
Quarter: 2024Q2

REPORT INFORMATION
  Report Type: Other
  Country: US (occurrence: None)
  Receive Date: 20240403
  Receipt Date: 20240403
  Transmission Date: 20240715
  Serious: Yes (Hospitalization)
  Sender: FDA-Public Use
  Company Number: US-ROCHE-3533867

PATIENT
  Age: 68 Year
  Sex: Female
  Weight: 49.94 kg

DRUGS (20)
  1. OCREVUS [Suspect]
     Active Substance: OCRELIZUMAB
     Indication: Multiple sclerosis relapse
     Dosage: LAST INFUSION DATE: 06/MAR/2023, 16/MAR/2023, 11/SEP/2023
     Route: 042
  2. HYDRALAZINE [Concomitant]
     Active Substance: HYDRALAZINE HYDROCHLORIDE
  3. AZATHIOPRINE [Concomitant]
     Active Substance: AZATHIOPRINE
  4. METOPROLOL [Concomitant]
     Active Substance: METOPROLOL
  5. SOTALOL [Concomitant]
     Active Substance: SOTALOL
  6. SPIRONOLACTONE [Concomitant]
     Active Substance: SPIRONOLACTONE
  7. AMLODIPINE [Concomitant]
     Active Substance: AMLODIPINE BESYLATE
  8. AMANTADINE [Concomitant]
     Active Substance: AMANTADINE
  9. LOVASTATIN [Concomitant]
     Active Substance: LOVASTATIN
  10. ELIQUIS [Concomitant]
     Active Substance: APIXABAN
  11. OMEPRAZOLE [Concomitant]
     Active Substance: OMEPRAZOLE
  12. PREDNISONE [Concomitant]
     Active Substance: PREDNISONE
  13. LEFLUNOMIDE [Concomitant]
     Active Substance: LEFLUNOMIDE
  14. LISINOPRIL [Concomitant]
     Active Substance: LISINOPRIL
  15. CALCIUM [Concomitant]
     Active Substance: CALCIUM
  16. RECLAST [Concomitant]
     Active Substance: ZOLEDRONIC ACID
  17. FOLIC ACID [Concomitant]
     Active Substance: FOLIC ACID
  18. VITAMIN D3 [Concomitant]
     Active Substance: CHOLECALCIFEROL
  19. VITAMIN C [Concomitant]
     Active Substance: ASCORBIC ACID
  20. TYLENOL [Concomitant]
     Active Substance: ACETAMINOPHEN

REACTIONS (6)
  - Osteomyelitis [Not Recovered/Not Resolved]
  - Localised infection [Not Recovered/Not Resolved]
  - Blood cholesterol increased [Not Recovered/Not Resolved]
  - Asthenia [Not Recovered/Not Resolved]
  - Pain in extremity [Not Recovered/Not Resolved]
  - Atrial fibrillation [Unknown]
